FAERS Safety Report 19371647 (Version 1)
Quarter: 2021Q2

REPORT INFORMATION
  Report Type: Spontaneous
  Country: US (occurrence: US)
  Receive Date: 20210603
  Receipt Date: 20210603
  Transmission Date: 20210717
  Serious: No
  Sender: FDA-Public Use
  Company Number: US-SA-2021SA183588

PATIENT
  Sex: Female

DRUGS (1)
  1. DUPIXENT [Suspect]
     Active Substance: DUPILUMAB
     Indication: NEURODERMATITIS
     Dosage: 300 MG, QOW
     Route: 058
     Dates: start: 20201218

REACTIONS (6)
  - Incorrect dose administered [Unknown]
  - Product dose omission issue [Unknown]
  - Presyncope [Unknown]
  - Anxiety [Unknown]
  - Fear of injection [Unknown]
  - Dizziness [Unknown]
